FAERS Safety Report 8099373-0 (Version None)
Quarter: 2012Q1

REPORT INFORMATION
  Report Type: 
  Country: None (occurrence: None)
  Receive Date: 20120129
  Receipt Date: 20111004
  Transmission Date: 20120608
  Serious: No
  Sender: FDA-Public Use
  Company Number: US-ABBOTT-11P-163-0855013-00

PATIENT
  Sex: Male

DRUGS (1)
  1. HUMIRA [Suspect]
     Indication: RHEUMATOID ARTHRITIS
     Route: 058
     Dates: start: 20110601, end: 20110801

REACTIONS (4)
  - LUNG INFECTION [None]
  - NERVE COMPRESSION [None]
  - CHRONIC SINUSITIS [None]
  - ARTHRALGIA [None]
